FAERS Safety Report 7742151-X (Version None)
Quarter: 2011Q3

REPORT INFORMATION
  Report Type: 
  Country: None (occurrence: None)
  Receive Date: 20110912
  Receipt Date: 20110906
  Transmission Date: 20111222
  Serious: Yes (Other)
  Sender: FDA-Public Use
  Company Number: PHHY2011HU65768

PATIENT
  Age: 57 Year
  Sex: Male

DRUGS (5)
  1. ANTIBIOTICS [Concomitant]
  2. ZOMETA [Suspect]
     Indication: BONE CANCER METASTATIC
     Dosage: 4 MG, QMO
     Route: 042
     Dates: start: 20100310, end: 20110626
  3. ALPHA D3 [Concomitant]
     Dosage: 1 G, DAILY
  4. SUTENT [Suspect]
     Indication: RENAL CANCER STAGE I
     Dosage: 50 MG, UNK
     Dates: start: 20100315
  5. CALCIUM-SANDOZ [Concomitant]
     Dosage: 500 MG, DAILY

REACTIONS (6)
  - ERYTHEMA [None]
  - OSTEONECROSIS OF JAW [None]
  - EXPOSED BONE IN JAW [None]
  - PAIN IN JAW [None]
  - OSTEITIS [None]
  - INFECTION [None]
